FAERS Safety Report 21187736 (Version 2)
Quarter: 2023Q2

REPORT INFORMATION
  Report Type: Spontaneous
  Country: US (occurrence: US)
  Receive Date: 20220809
  Receipt Date: 20230406
  Transmission Date: 20230721
  Serious: Yes (Other)
  Sender: FDA-Public Use
  Company Number: US-BEH-2022148085

PATIENT
  Sex: Male

DRUGS (14)
  1. IDELVION [Suspect]
     Active Substance: COAGULATION FACTOR IX RECOMBINANT HUMAN
     Indication: Factor IX deficiency
     Dosage: 3918 INTERNATIONAL UNIT, QW
     Route: 042
     Dates: start: 20220526
  2. IDELVION [Suspect]
     Active Substance: COAGULATION FACTOR IX RECOMBINANT HUMAN
     Indication: Factor IX deficiency
     Dosage: 3918 INTERNATIONAL UNIT, QW
     Route: 042
     Dates: start: 20220526
  3. IDELVION [Suspect]
     Active Substance: COAGULATION FACTOR IX RECOMBINANT HUMAN
     Indication: Prophylaxis
     Dosage: 1032 INTERNATIONAL UNIT, QW
     Route: 042
     Dates: start: 20220526
  4. IDELVION [Suspect]
     Active Substance: COAGULATION FACTOR IX RECOMBINANT HUMAN
     Indication: Prophylaxis
     Dosage: 1032 INTERNATIONAL UNIT, QW
     Route: 042
     Dates: start: 20220526
  5. IDELVION [Suspect]
     Active Substance: COAGULATION FACTOR IX RECOMBINANT HUMAN
     Dosage: 2011 INTERNATIONAL UNIT, QW
     Route: 042
     Dates: start: 20220526
  6. IDELVION [Suspect]
     Active Substance: COAGULATION FACTOR IX RECOMBINANT HUMAN
     Dosage: 2011 INTERNATIONAL UNIT, QW
     Route: 042
     Dates: start: 20220526
  7. IDELVION [Suspect]
     Active Substance: COAGULATION FACTOR IX RECOMBINANT HUMAN
     Dosage: 1093 INTERNATIONAL UNIT, QW
     Route: 042
     Dates: start: 202205
  8. IDELVION [Suspect]
     Active Substance: COAGULATION FACTOR IX RECOMBINANT HUMAN
     Dosage: 1093 INTERNATIONAL UNIT, QW
     Route: 042
     Dates: start: 202205
  9. IDELVION [Suspect]
     Active Substance: COAGULATION FACTOR IX RECOMBINANT HUMAN
     Dosage: 7000 INTERNATIONAL UNIT, QW
     Route: 042
  10. IDELVION [Suspect]
     Active Substance: COAGULATION FACTOR IX RECOMBINANT HUMAN
     Dosage: 7000 INTERNATIONAL UNIT, QW
     Route: 042
  11. IDELVION [Suspect]
     Active Substance: COAGULATION FACTOR IX RECOMBINANT HUMAN
     Dosage: 3882 INTERNATIONAL UNIT, QW
     Route: 042
     Dates: start: 202205
  12. IDELVION [Suspect]
     Active Substance: COAGULATION FACTOR IX RECOMBINANT HUMAN
     Dosage: 3882 INTERNATIONAL UNIT, QW
     Route: 042
     Dates: start: 202205
  13. IDELVION [Suspect]
     Active Substance: COAGULATION FACTOR IX RECOMBINANT HUMAN
     Dosage: 2139 INTERNATIONAL UNIT, QW
     Route: 042
     Dates: start: 202205
  14. IDELVION [Suspect]
     Active Substance: COAGULATION FACTOR IX RECOMBINANT HUMAN
     Dosage: 2139 INTERNATIONAL UNIT, QW
     Route: 042
     Dates: start: 202205

REACTIONS (2)
  - Haemorrhage [Recovered/Resolved]
  - Haemarthrosis [Unknown]
